FAERS Safety Report 6040547-8 (Version None)
Quarter: 2009Q1

REPORT INFORMATION
  Report Type: 
  Country: None (occurrence: None)
  Receive Date: 20090116
  Receipt Date: 20080402
  Transmission Date: 20090719
  Serious: Yes (Hospitalization)
  Sender: FDA-Public Use
  Company Number: US-BRISTOL-MYERS SQUIBB COMPANY-14136568

PATIENT
  Age: 5 Decade
  Sex: Female

DRUGS (1)
  1. ABILIFY [Suspect]
     Dosage: INITIATED ON 2MG FOR 4DAYS,INCREASED TO 5MG.

REACTIONS (1)
  - NEUROLEPTIC MALIGNANT SYNDROME [None]
